FAERS Safety Report 9123264 (Version 4)
Quarter: 2013Q1

REPORT INFORMATION
  Report Type: Spontaneous
  Country: US (occurrence: None)
  Receive Date: 20130131
  Receipt Date: 20130308
  Transmission Date: 20140127
  Serious: Yes (Other)
  Sender: FDA-Public Use
  Company Number: JPI-P-029345

PATIENT
  Age: 50 Year
  Sex: Female
  Weight: 111.59 kg

DRUGS (13)
  1. XYREM (500 MILLIGRAM/MILLILITERS, SOLUTION) (SODIUM OXYBATE) [Suspect]
     Indication: CATAPLEXY
     Dosage: 9 GM (4.5 GM, 12 IN 1 DAY) ORAL
     Route: 048
     Dates: start: 20030516
  2. TOPIRAMATE [Suspect]
     Indication: MIGRAINE
     Dosage: (UNKNOWN)
  3. BACLOFEN [Suspect]
     Indication: MUSCLE DISORDER
  4. QUETIAPINE FUMARATE [Suspect]
     Indication: DEPRESSION
  5. METFORMIN HYDROCHLORIDE [Concomitant]
  6. PRAVASTATIN [Concomitant]
  7. MODAFINIL [Concomitant]
  8. LISINOPRIL [Concomitant]
  9. VENLAFAXINE [Concomitant]
  10. TRIAMTERENE AND HYDROCHLOROTHIAZIDE [Concomitant]
  11. DEXLANSOPRAZOLE [Concomitant]
  12. DILTIAZEM [Concomitant]
  13. OMEPRAZOLE [Concomitant]

REACTIONS (10)
  - Convulsion [None]
  - Influenza [None]
  - Swollen tongue [None]
  - Dizziness [None]
  - Loss of consciousness [None]
  - Amnesia [None]
  - Somnolence [None]
  - Abdominal pain upper [None]
  - Tremor [None]
  - Slow response to stimuli [None]
